FAERS Safety Report 7990987-2 (Version None)
Quarter: 2011Q4

REPORT INFORMATION
  Report Type: 
  Country: None (occurrence: None)
  Receive Date: 20111219
  Receipt Date: 20111209
  Transmission Date: 20120403
  Serious: Yes (Hospitalization)
  Sender: FDA-Public Use
  Company Number: AU-ABBOTT-11P-008-0879897-00

PATIENT
  Sex: Female

DRUGS (1)
  1. HUMIRA [Suspect]
     Indication: CROHN'S DISEASE
     Dates: start: 20110201

REACTIONS (6)
  - NECK PAIN [None]
  - PHOTOPHOBIA [None]
  - MIGRAINE [None]
  - VOMITING [None]
  - CROHN'S DISEASE [None]
  - NAUSEA [None]
